FAERS Safety Report 20781761 (Version 1)
Quarter: 2022Q2

REPORT INFORMATION
  Report Type: Spontaneous
  Country: US (occurrence: US)
  Receive Date: 20220504
  Receipt Date: 20220504
  Transmission Date: 20220721
  Serious: Yes (Death)
  Sender: FDA-Public Use
  Company Number: US-PROCTER_AND_GAMBLE-PH22004368

PATIENT

DRUGS (5)
  1. CALCIUM CARBONATE [Suspect]
     Active Substance: CALCIUM CARBONATE
     Dosage: UNK, MOTHER TOOK 8 TO 10 TABLETS
     Route: 064
  2. CHOLECALCIFEROL [Concomitant]
     Active Substance: CHOLECALCIFEROL
  3. INSULIN NOS [Concomitant]
     Active Substance: INSULIN NOS
  4. SODIUM CHLORIDE [Concomitant]
     Active Substance: SODIUM CHLORIDE
  5. BETAMETHASONE [Concomitant]
     Active Substance: BETAMETHASONE
     Dosage: 12 MILLIGRAM, 1 /DAY, FOR 3 DOSES
     Route: 064

REACTIONS (2)
  - Premature baby [Fatal]
  - Foetal exposure during pregnancy [Fatal]
